FAERS Safety Report 5842684-7 (Version None)
Quarter: 2008Q3

REPORT INFORMATION
  Report Type: 
  Country: None (occurrence: None)
  Receive Date: 20080808
  Receipt Date: 20080731
  Transmission Date: 20090109
  Serious: Yes (Hospitalization)
  Sender: FDA-Public Use
  Company Number: 2008AL008888

PATIENT
  Age: 75 Year
  Sex: Female
  Weight: 48.0813 kg

DRUGS (2)
  1. DIGOXIN [Suspect]
     Indication: HEART RATE INCREASED
     Dosage: 0.25 MG DAILY PO
     Route: 048
     Dates: start: 19970101
  2. WARFARIN SODIUM [Concomitant]

REACTIONS (5)
  - ANGER [None]
  - DEPRESSION [None]
  - DIZZINESS [None]
  - MEMORY IMPAIRMENT [None]
  - SLEEP DISORDER [None]
